FAERS Safety Report 8820569 (Version 2)
Quarter: 2012Q4

REPORT INFORMATION
  Report Type: 
  Country: US (occurrence: US)
  Receive Date: 20121002
  Receipt Date: 20121115
  Transmission Date: 20130627
  Serious: Yes (Death, Hospitalization, Other)
  Sender: FDA-Public Use
  Company Number: US-ACTELION-A-US2012-71951

PATIENT
  Age: 74 Year
  Sex: Male

DRUGS (9)
  1. VELETRI [Suspect]
     Indication: PULMONARY HYPERTENSION
     Dosage: 41 ng/kg, per min
     Route: 042
     Dates: start: 20110831
  2. LETAIRIS [Suspect]
     Dosage: 5 mg, qd
     Route: 048
     Dates: start: 20120119, end: 20120911
  3. REVATIO [Concomitant]
  4. OXYGEN [Concomitant]
  5. SODIUM BICARBONATE [Concomitant]
  6. PRILOSEC [Concomitant]
  7. OMEPRAZOLE [Concomitant]
  8. MORPHINE SULFATE [Concomitant]
  9. AMBIEN [Concomitant]

REACTIONS (12)
  - Death [Fatal]
  - Haematemesis [Unknown]
  - Renal failure [Unknown]
  - Gastrointestinal haemorrhage [Unknown]
  - Right ventricular failure [Unknown]
  - Platelet count [Unknown]
  - International normalised ratio increased [Unknown]
  - Haemoglobin decreased [Unknown]
  - Epistaxis [Unknown]
  - Respiratory distress [Unknown]
  - Duodenal ulcer [Unknown]
  - Condition aggravated [Unknown]
